FAERS Safety Report 18525458 (Version 1)
Quarter: 2020Q4

REPORT INFORMATION
  Report Type: Spontaneous
  Country: US (occurrence: US)
  Receive Date: 20201120
  Receipt Date: 20201120
  Transmission Date: 20210114
  Serious: Yes (Other)
  Sender: FDA-Public Use
  Company Number: US-ABBVIE-20K-163-3527936-00

PATIENT
  Sex: Female
  Weight: 61.29 kg

DRUGS (5)
  1. OXYCODONE [Suspect]
     Active Substance: OXYCODONE
     Indication: PAIN
     Dosage: 10/325
     Route: 065
     Dates: start: 2018
  2. HYDROCODONE [Concomitant]
     Active Substance: HYDROCODONE
     Indication: PRODUCT USED FOR UNKNOWN INDICATION
  3. VICODIN [Suspect]
     Active Substance: ACETAMINOPHEN\HYDROCODONE BITARTRATE
     Indication: PRODUCT USED FOR UNKNOWN INDICATION
     Route: 048
     Dates: start: 2003
  4. NORCO [Suspect]
     Active Substance: ACETAMINOPHEN\HYDROCODONE BITARTRATE
     Indication: PRODUCT USED FOR UNKNOWN INDICATION
     Route: 065
  5. WELLBUTRIN [Concomitant]
     Active Substance: BUPROPION HYDROCHLORIDE
     Indication: PRODUCT USED FOR UNKNOWN INDICATION

REACTIONS (4)
  - Spinal compression fracture [Unknown]
  - Back pain [Recovered/Resolved]
  - Drug dependence [Unknown]
  - Accident [Unknown]

NARRATIVE: CASE EVENT DATE: 2017
